FAERS Safety Report 15688080 (Version 1)
Quarter: 2018Q4

REPORT INFORMATION
  Report Type: Spontaneous
  Country: JP (occurrence: JP)
  Receive Date: 20181205
  Receipt Date: 20181205
  Transmission Date: 20190205
  Serious: Yes (Hospitalization)
  Sender: FDA-Public Use
  Company Number: JP-TEVA-2018-JP-982789

PATIENT
  Age: 88 Year
  Sex: Male

DRUGS (10)
  1. VALACICLOVIR [Suspect]
     Active Substance: VALACYCLOVIR HYDROCHLORIDE
     Indication: HERPES ZOSTER
     Route: 065
  2. LEVOFLOXACIN. [Suspect]
     Active Substance: LEVOFLOXACIN
     Indication: HERPES ZOSTER
     Route: 065
  3. AMLODIPINE [Concomitant]
     Active Substance: AMLODIPINE BESYLATE
     Route: 065
  4. GLIMEPIRIDE. [Concomitant]
     Active Substance: GLIMEPIRIDE
     Route: 065
  5. OMEPRAZOLE. [Concomitant]
     Active Substance: OMEPRAZOLE
     Route: 065
  6. METFORMIN [Concomitant]
     Active Substance: METFORMIN HYDROCHLORIDE
     Route: 065
  7. IMIDAFENACIN [Concomitant]
     Active Substance: IMIDAFENACIN
     Route: 065
  8. IPRAGLIFLOZIN [Suspect]
     Active Substance: IPRAGLIFLOZIN
     Route: 065
  9. TAMSULOSIN [Concomitant]
     Active Substance: TAMSULOSIN
     Route: 065
  10. IMIDAPRIL [Concomitant]
     Active Substance: IMIDAPRIL
     Route: 065

REACTIONS (4)
  - Dehydration [Recovered/Resolved]
  - Renal impairment [Recovered/Resolved]
  - Neurotoxicity [Recovered/Resolved]
  - Condition aggravated [Recovered/Resolved]
